FAERS Safety Report 8045732-1 (Version None)
Quarter: 2012Q1

REPORT INFORMATION
  Report Type: 
  Country: None (occurrence: None)
  Receive Date: 20120113
  Receipt Date: 20120106
  Transmission Date: 20120608
  Serious: Yes (Other)
  Sender: FDA-Public Use
  Company Number: PHFR2011GB007069

PATIENT
  Sex: Female

DRUGS (2)
  1. CALCIUM CARBONATE [Concomitant]
  2. CARBAMAZEPINE [Suspect]
     Indication: EPILEPSY
     Dosage: 1400 MG, DAILY
     Route: 048
     Dates: end: 20111001

REACTIONS (3)
  - NEUTROPENIA [None]
  - MALAISE [None]
  - TIBIA FRACTURE [None]
